FAERS Safety Report 8783818 (Version 1)
Quarter: 2012Q4

REPORT INFORMATION
  Report Type: Spontaneous
  Country: US (occurrence: None)
  Receive Date: 20120829
  Receipt Date: 20120829
  Transmission Date: 20130627
  Serious: Yes (Death, Hospitalization, Other)
  Sender: FDA-Public Use
  Company Number: FK201202395

PATIENT
  Sex: Male

DRUGS (2)
  1. PROPOFOL [Suspect]
     Indication: PAIN
  2. DILAUDID [Suspect]
     Dosage: intravenous (not otherwise specified)
     Route: 042

REACTIONS (10)
  - Sedation [None]
  - Dry mouth [None]
  - Dyspnoea [None]
  - Pharyngeal disorder [None]
  - Ileus [None]
  - Cardiac disorder [None]
  - Respiratory disorder [None]
  - Cardiomegaly [None]
  - Splenomegaly [None]
  - Kidney enlargement [None]
